FAERS Safety Report 6816152-X (Version None)
Quarter: 2010Q3

REPORT INFORMATION
  Report Type: 
  Country: None (occurrence: None)
  Receive Date: 20100702
  Receipt Date: 20100702
  Transmission Date: 20110219
  Serious: Yes (Other)
  Sender: FDA-Public Use
  Company Number: None

PATIENT
  Age: 16 Year
  Sex: Female
  Weight: 89.8122 kg

DRUGS (1)
  1. SINCALIDE FOR INJECTION KINEVAC 5 MICROGRAMS BRACCO DIAGNOSTICS [Suspect]
     Indication: BILIARY DYSKINESIA
     Dosage: 0.72 MICROGRAMS ONE TIME IV
     Route: 042

REACTIONS (6)
  - CHEST DISCOMFORT [None]
  - COUGH [None]
  - DYSPNOEA [None]
  - PRURITUS [None]
  - THROAT IRRITATION [None]
  - THROAT TIGHTNESS [None]
